FAERS Safety Report 6770101-1 (Version None)
Quarter: 2010Q2

REPORT INFORMATION
  Report Type: 
  Country: None (occurrence: None)
  Receive Date: 20100615
  Receipt Date: 20100604
  Transmission Date: 20101027
  Serious: Yes (Other)
  Sender: FDA-Public Use
  Company Number: US-JNJFOC-20100500273

PATIENT
  Sex: Female
  Weight: 20.41 kg

DRUGS (4)
  1. INVEGA [Suspect]
     Indication: PSYCHOTIC DISORDER
     Dosage: ^ONE 1.5 MG TAB TO ONE 6 MG TAB EACH DAY ORAL^
     Route: 048
  2. INVEGA [Suspect]
     Dosage: 1.5 MG TAB ALT. WITH ONE 3 MG TAB EACH DAY
     Route: 048
  3. CONCERTA [Concomitant]
     Indication: ATTENTION DEFICIT/HYPERACTIVITY DISORDER
     Route: 048
  4. CLONIDINE [Concomitant]
     Indication: ATTENTION DEFICIT/HYPERACTIVITY DISORDER
     Dosage: 0.1 MG IN THE AM, .05 MG AT MIDNIGHT AS NEEDED.
     Route: 048

REACTIONS (2)
  - BLOOD GLUCOSE DECREASED [None]
  - TARDIVE DYSKINESIA [None]
